FAERS Safety Report 6929112-5 (Version None)
Quarter: 2010Q3

REPORT INFORMATION
  Report Type: 
  Country: None (occurrence: None)
  Receive Date: 20100817
  Receipt Date: 20100707
  Transmission Date: 20110219
  Serious: No
  Sender: FDA-Public Use
  Company Number: US-BAXTER-2010BH003478

PATIENT
  Age: 59 Year
  Sex: Male
  Weight: 70 kg

DRUGS (1)
  1. HEPARIN SODIUM INJECTION [Suspect]
     Indication: PRODUCT USED FOR UNKNOWN INDICATION
     Route: 058
     Dates: start: 20080101, end: 20080101

REACTIONS (4)
  - BLOOD URINE PRESENT [None]
  - HYPERTENSION [None]
  - RASH [None]
  - URTICARIA [None]
